FAERS Safety Report 24949999 (Version 3)
Quarter: 2025Q3

REPORT INFORMATION
  Report Type: Spontaneous
  Country: US (occurrence: US)
  Receive Date: 20250210
  Receipt Date: 20250912
  Transmission Date: 20251021
  Serious: No
  Sender: BRISTOL-MYERS SQUIBB COMPANY
  Company Number: US-BRISTOL-MYERS SQUIBB COMPANY-2025-016616

PATIENT
  Age: 65 Year
  Sex: Male

DRUGS (1)
  1. POMALYST [Suspect]
     Active Substance: POMALIDOMIDE
     Indication: Plasma cell myeloma

REACTIONS (11)
  - Depression [Unknown]
  - Fatigue [Unknown]
  - Hypersomnia [Unknown]
  - Pain in extremity [Unknown]
  - Nausea [Unknown]
  - Blood glucose abnormal [Unknown]
  - Amnesia [Unknown]
  - Mood altered [Unknown]
  - Pain [Unknown]
  - Dysphagia [Unknown]
  - Vomiting [Unknown]
